FAERS Safety Report 9234247 (Version 1)
Quarter: 2013Q2

REPORT INFORMATION
  Report Type: Spontaneous
  Country: JP (occurrence: JP)
  Receive Date: 20130416
  Receipt Date: 20130416
  Transmission Date: 20140414
  Serious: Yes (Other)
  Sender: FDA-Public Use
  Company Number: PHHY2013JP035695

PATIENT
  Age: 63 Year
  Sex: Female

DRUGS (1)
  1. RIFAMPICIN SANDOZ [Suspect]
     Indication: ATYPICAL MYCOBACTERIAL INFECTION
     Route: 048

REACTIONS (5)
  - Bezoar [Unknown]
  - Decreased appetite [Unknown]
  - Abdominal pain [Unknown]
  - Fatigue [Unknown]
  - Impaired gastric emptying [Unknown]
